FAERS Safety Report 24964919 (Version 3)
Quarter: 2025Q1

REPORT INFORMATION
  Report Type: Spontaneous
  Country: CA (occurrence: CA)
  Receive Date: 20250213
  Receipt Date: 20250303
  Transmission Date: 20250408
  Serious: Yes (Death, Hospitalization, Other)
  Sender: CSL BEHRING
  Company Number: CA-BEH-2025195402

PATIENT
  Age: 51 Year
  Sex: Male

DRUGS (2)
  1. HUMAN IMMUNOGLOBULIN G [Suspect]
     Active Substance: HUMAN IMMUNOGLOBULIN G
     Indication: Secondary immunodeficiency
     Dosage: 8 G, QW
     Route: 058
  2. Immunoglobulin [Concomitant]
     Indication: Product used for unknown indication

REACTIONS (6)
  - Anaemia [Fatal]
  - Asthenia [Fatal]
  - Kidney infection [Fatal]
  - Neoplasm malignant [Fatal]
  - Renal failure [Fatal]
  - Off label use [Unknown]
